FAERS Safety Report 23958274 (Version 1)
Quarter: 2024Q2

REPORT INFORMATION
  Report Type: Spontaneous
  Country: US (occurrence: US)
  Receive Date: 20240610
  Receipt Date: 20240610
  Transmission Date: 20240715
  Serious: Yes (Hospitalization)
  Sender: FDA-Public Use
  Company Number: US-BRISTOL-MYERS SQUIBB COMPANY-2024-092910

PATIENT
  Age: 84 Year
  Sex: Female
  Weight: 69.85 kg

DRUGS (1)
  1. REVLIMID [Suspect]
     Active Substance: LENALIDOMIDE
     Indication: Non-Hodgkin^s lymphoma
     Dosage: 5MG CAPSULE DAILY FOR 2 WEEKS THEN 1 WEEK OFF
     Route: 048

REACTIONS (2)
  - Herpes zoster [Unknown]
  - Asthenia [Unknown]
